FAERS Safety Report 24980238 (Version 1)
Quarter: 2025Q1

REPORT INFORMATION
  Report Type: 
  Country: FR (occurrence: FR)
  Receive Date: 20250218
  Receipt Date: 20250218
  Transmission Date: 20250408
  Serious: Yes (Hospitalization, Other)
  Sender: ACCORD
  Company Number: FR-Accord-469836

PATIENT
  Age: 72 Year
  Sex: Male

DRUGS (5)
  1. TACROLIMUS [Interacting]
     Active Substance: TACROLIMUS
     Indication: Immunosuppressant drug therapy
     Dosage: IMMEDIATE RELEASE; TARGET TROUGH BLOOD CONCENTRATION: 5.0-6.0 MG/L
  2. NIRMATRELVIR [Interacting]
     Active Substance: NIRMATRELVIR
     Indication: COVID-19 pneumonia
  3. RITONAVIR [Interacting]
     Active Substance: RITONAVIR
     Indication: COVID-19
  4. REMDESIVIR [Interacting]
     Active Substance: REMDESIVIR
     Indication: COVID-19
  5. MYCOPHENOLATE MOFETIL [Concomitant]
     Active Substance: MYCOPHENOLATE MOFETIL
     Indication: Immunosuppressant drug therapy
     Dosage: TARGET TROUGH PLASMA CONCENTRATION: 2.5 MG/L

REACTIONS (8)
  - Drug interaction [Unknown]
  - Hypertensive crisis [Unknown]
  - Microangiopathy [Unknown]
  - Renal impairment [Recovered/Resolved]
  - Red blood cell count decreased [Recovered/Resolved]
  - Overdose [Unknown]
  - Thrombotic microangiopathy [Unknown]
  - Haematocrit decreased [Recovered/Resolved]
